FAERS Safety Report 6923477-6 (Version None)
Quarter: 2010Q3

REPORT INFORMATION
  Report Type: 
  Country: None (occurrence: None)
  Receive Date: 20100813
  Receipt Date: 20100810
  Transmission Date: 20110219
  Serious: Yes (Death, Congenital Anomaly)
  Sender: FDA-Public Use
  Company Number: PHHY2010ES53246

PATIENT
  Sex: Female
  Weight: 2.52 kg

DRUGS (1)
  1. VALSARTAN [Suspect]
     Indication: HYPERTENSION
     Route: 064

REACTIONS (7)
  - MATERNAL DRUGS AFFECTING FOETUS [None]
  - OLIGOHYDRAMNIOS [None]
  - PREMATURE BABY [None]
  - PULMONARY HYPOPLASIA [None]
  - RENAL DYSPLASIA [None]
  - RENAL FAILURE [None]
  - RESPIRATORY FAILURE [None]
